FAERS Safety Report 7294075-2 (Version None)
Quarter: 2011Q1

REPORT INFORMATION
  Report Type: 
  Country: None (occurrence: None)
  Receive Date: 20110203
  Receipt Date: 20110118
  Transmission Date: 20110831
  Serious: Yes (Death, Hospitalization)
  Sender: FDA-Public Use
  Company Number: B0696715A

PATIENT
  Age: 19 Year
  Sex: Male

DRUGS (1)
  1. LAMOTRIGINE [Suspect]
     Indication: PRODUCT USED FOR UNKNOWN INDICATION
     Dosage: ORAL
     Route: 048

REACTIONS (10)
  - ATRIOVENTRICULAR BLOCK COMPLETE [None]
  - DISSEMINATED INTRAVASCULAR COAGULATION [None]
  - CONVULSION [None]
  - CARDIAC ARREST [None]
  - HAEMODIALYSIS [None]
  - RENAL FAILURE [None]
  - MULTI-ORGAN FAILURE [None]
  - ASPIRATION [None]
  - PULSE ABSENT [None]
  - HYPOTENSION [None]
